FAERS Safety Report 16940825 (Version 1)
Quarter: 2019Q4

REPORT INFORMATION
  Report Type: Spontaneous
  Country: GB (occurrence: GB)
  Receive Date: 20191021
  Receipt Date: 20191021
  Transmission Date: 20200122
  Serious: Yes (Hospitalization, Congenital Anomaly, Other)
  Sender: FDA-Public Use
  Company Number: GB-MYLANLABS-2019M1097928

PATIENT
  Sex: Male
  Weight: 3.96 kg

DRUGS (1)
  1. ONDANSETRON [Suspect]
     Active Substance: ONDANSETRON
     Indication: ANTIEMETIC SUPPORTIVE CARE
     Dosage: 12 MILLIGRAM, QD, DURING FIRST TRIMESTER, REDUCED TO ONCE DAILY FOR REMAINDER OF PREGNANCY
     Route: 064
     Dates: start: 20181123, end: 20190629

REACTIONS (3)
  - Hypertension [Unknown]
  - Coarctation of the aorta [Recovered/Resolved with Sequelae]
  - Foetal exposure during pregnancy [Recovered/Resolved]

NARRATIVE: CASE EVENT DATE: 20190629
